FAERS Safety Report 11788579 (Version 1)
Quarter: 2015Q4

REPORT INFORMATION
  Report Type: Spontaneous
  Country: US (occurrence: None)
  Receive Date: 20151130
  Receipt Date: 20151130
  Transmission Date: 20160305
  Serious: Yes (Disabling)
  Sender: FDA-Public Use
  Company Number: None

PATIENT
  Age: 8 Month
  Sex: Female
  Weight: 54.43 kg

DRUGS (4)
  1. LEVALUX [Concomitant]
  2. OPDIVO [Suspect]
     Active Substance: NIVOLUMAB
     Indication: LUNG NEOPLASM MALIGNANT
     Dates: start: 20150922, end: 20151124
  3. TARCEVA [Concomitant]
     Active Substance: ERLOTINIB HYDROCHLORIDE
  4. NEXIUM [Concomitant]
     Active Substance: ESOMEPRAZOLE MAGNESIUM

REACTIONS (9)
  - Diarrhoea [None]
  - Feeding disorder [None]
  - Polyuria [None]
  - No therapeutic response [None]
  - Dyspnoea [None]
  - Dehydration [None]
  - Insomnia [None]
  - Headache [None]
  - Visual acuity reduced [None]

NARRATIVE: CASE EVENT DATE: 20151117
